FAERS Safety Report 10251382 (Version 2)
Quarter: 2014Q2

REPORT INFORMATION
  Report Type: Spontaneous
  Country: GB (occurrence: GB)
  Receive Date: 20140622
  Receipt Date: 20140627
  Transmission Date: 20141212
  Serious: Yes (Hospitalization, Other)
  Sender: FDA-Public Use
  Company Number: GB-JNJFOC-20140606851

PATIENT
  Sex: Male

DRUGS (8)
  1. DAKTARIN [Suspect]
     Route: 048
  2. DAKTARIN [Suspect]
     Indication: CANDIDA INFECTION
     Route: 048
     Dates: start: 20140531
  3. WARFARIN [Interacting]
     Indication: PRODUCT USED FOR UNKNOWN INDICATION
     Route: 065
  4. STATINS [Interacting]
     Indication: PRODUCT USED FOR UNKNOWN INDICATION
     Route: 065
  5. LISINOPRIL [Concomitant]
     Indication: BLOOD PRESSURE
     Route: 065
  6. BISOPROLOL [Concomitant]
     Indication: HEART RATE
     Route: 065
  7. DUTASTERIDE [Concomitant]
     Indication: BLADDER DISORDER
     Route: 065
  8. ASACOL [Concomitant]
     Indication: COLITIS
     Route: 065

REACTIONS (5)
  - International normalised ratio increased [Recovering/Resolving]
  - Drug interaction [Unknown]
  - Peripheral swelling [Unknown]
  - Erythema [Unknown]
  - Foreign body [Unknown]
